FAERS Safety Report 9994955 (Version 3)
Quarter: 2014Q1

REPORT INFORMATION
  Report Type: Spontaneous
  Country: CA (occurrence: CA)
  Receive Date: 20140311
  Receipt Date: 20140318
  Transmission Date: 20141002
  Serious: Yes (Other)
  Sender: FDA-Public Use
  Company Number: CA-JNJFOC-20140204709

PATIENT
  Sex: Female

DRUGS (2)
  1. NICODERM STEP 3 CLEAR [Suspect]
     Indication: SMOKING CESSATION THERAPY
     Route: 061
  2. NICORETTE QUICK MIST 1MG NICO SPRAY [Suspect]
     Indication: NICOTINE DEPENDENCE
     Route: 065

REACTIONS (6)
  - Withdrawal syndrome [Unknown]
  - Malaise [Not Recovered/Not Resolved]
  - Nausea [Not Recovered/Not Resolved]
  - Headache [Unknown]
  - Hiccups [Not Recovered/Not Resolved]
  - Drug ineffective [Not Recovered/Not Resolved]
